FAERS Safety Report 25489097 (Version 2)
Quarter: 2025Q3

REPORT INFORMATION
  Report Type: Spontaneous
  Country: US (occurrence: US)
  Receive Date: 20250627
  Receipt Date: 20250728
  Transmission Date: 20251020
  Serious: No
  Sender: ABBVIE
  Company Number: US-ABBVIE-6348101

PATIENT
  Age: 74 Year
  Sex: Female

DRUGS (1)
  1. CREON [Suspect]
     Active Substance: PANCRELIPASE AMYLASE\PANCRELIPASE LIPASE\PANCRELIPASE PROTEASE
     Indication: Pancreatic failure
     Route: 048

REACTIONS (3)
  - Anxiety [Recovering/Resolving]
  - Dehydration [Recovering/Resolving]
  - Memory impairment [Recovering/Resolving]
